FAERS Safety Report 10522101 (Version 3)
Quarter: 2014Q4

REPORT INFORMATION
  Report Type: Spontaneous
  Country: US (occurrence: US)
  Receive Date: 20141016
  Receipt Date: 20141219
  Transmission Date: 20150528
  Serious: Yes (Hospitalization, Other)
  Sender: FDA-Public Use
  Company Number: US-PFIZER INC-2014278954

PATIENT
  Age: 78 Year
  Sex: Male
  Weight: 102 kg

DRUGS (2)
  1. SUTENT [Suspect]
     Active Substance: SUNITINIB MALATE
     Indication: RENAL CELL CARCINOMA
     Dosage: 50 MG, 1X/DAY (FOR 28 DAYS)
     Route: 048
     Dates: start: 20140403
  2. SUTENT [Suspect]
     Active Substance: SUNITINIB MALATE
     Dosage: 50 MG, EVERY OTHER DAY
     Route: 048
     Dates: end: 201406

REACTIONS (7)
  - Thrombosis [Unknown]
  - Renal cell carcinoma [Unknown]
  - Haematemesis [Unknown]
  - Dyspnoea [Unknown]
  - Disease progression [Unknown]
  - Vomiting [Unknown]
  - Haemoptysis [Unknown]

NARRATIVE: CASE EVENT DATE: 201404
